FAERS Safety Report 7002264-7 (Version None)
Quarter: 2010Q3

REPORT INFORMATION
  Report Type: 
  Country: None (occurrence: None)
  Receive Date: 20100920
  Receipt Date: 20100610
  Transmission Date: 20110219
  Serious: No
  Sender: FDA-Public Use
  Company Number: US-ASTRAZENECA-2010SE26809

PATIENT
  Age: 64 Year
  Sex: Female
  Weight: 77.1 kg

DRUGS (14)
  1. SEROQUEL [Suspect]
     Indication: BIPOLAR DISORDER
     Route: 048
     Dates: start: 20000101
  2. SEROQUEL [Suspect]
     Indication: MANIA
     Route: 048
     Dates: start: 20000101
  3. SEROQUEL [Suspect]
     Dosage: 400 MGS
     Route: 048
  4. SEROQUEL [Suspect]
     Dosage: 400 MGS
     Route: 048
  5. SEROQUEL [Suspect]
     Route: 048
  6. SEROQUEL [Suspect]
     Route: 048
  7. SEROQUEL [Suspect]
     Dosage: 400 MGS
     Route: 048
  8. SEROQUEL [Suspect]
     Dosage: 400 MGS
     Route: 048
  9. SEROQUEL [Suspect]
     Dosage: 200 MGS
     Route: 048
  10. SEROQUEL [Suspect]
     Dosage: 200 MGS
     Route: 048
  11. SEROQUEL [Suspect]
     Dosage: 300MG HS
     Route: 048
  12. SEROQUEL [Suspect]
     Dosage: 300MG HS
     Route: 048
  13. NEURONTIN [Concomitant]
  14. WELLBUTRIN [Concomitant]

REACTIONS (12)
  - ARTERIOSCLEROSIS [None]
  - CHEST PAIN [None]
  - DIZZINESS [None]
  - DRUG DOSE OMISSION [None]
  - FATIGUE [None]
  - HYPOTHYROIDISM [None]
  - INCORRECT DOSE ADMINISTERED [None]
  - INSOMNIA [None]
  - ISCHAEMIA [None]
  - LABYRINTHITIS [None]
  - TREMOR [None]
  - WEIGHT INCREASED [None]
